FAERS Safety Report 4916991-6 (Version None)
Quarter: 2006Q1

REPORT INFORMATION
  Report Type: 
  Country: None (occurrence: None)
  Receive Date: 20060221
  Receipt Date: 20060210
  Transmission Date: 20060701
  Serious: Yes (Hospitalization)
  Sender: FDA-Public Use
  Company Number: FR-ABBOTT-06P-056-0324639-00

PATIENT
  Age: 15 Year
  Sex: Female

DRUGS (1)
  1. NORVIR [Suspect]
     Indication: HIV INFECTION
     Route: 048

REACTIONS (1)
  - TOXIC SKIN ERUPTION [None]
